FAERS Safety Report 9752277 (Version 1)
Quarter: 2013Q4

REPORT INFORMATION
  Report Type: Spontaneous
  Country: US (occurrence: None)
  Receive Date: 20131211
  Receipt Date: 20131211
  Transmission Date: 20140711
  Serious: Yes (Hospitalization, Disabling)
  Sender: FDA-Public Use
  Company Number: FR-20130452

PATIENT
  Age: 57 Year
  Sex: Female

DRUGS (3)
  1. DOTAREM (GADOTERIC ACID) [Suspect]
     Indication: NUCLEAR MAGNETIC RESONANCE IMAGING
     Route: 042
     Dates: start: 20070223, end: 20090703
  2. MAGNEVIST [Suspect]
     Indication: NUCLEAR MAGNETIC RESONANCE IMAGING
     Route: 042
     Dates: start: 20090703, end: 20090703
  3. MULTIHANCE [Suspect]
     Indication: NUCLEAR MAGNETIC RESONANCE IMAGING
     Route: 042
     Dates: start: 20070216, end: 20070216

REACTIONS (17)
  - Nephrogenic systemic fibrosis [None]
  - Renal failure chronic [None]
  - Dialysis [None]
  - Vascular pseudoaneurysm [None]
  - Clear cell renal cell carcinoma [None]
  - Pulmonary arterial hypertension [None]
  - Aortic stenosis [None]
  - Mitral valve disease [None]
  - Tricuspid valve disease [None]
  - Mitral valve calcification [None]
  - Tricuspid valve calcification [None]
  - Intermittent claudication [None]
  - Scleroderma [None]
  - Skin lesion [None]
  - Scleroedema [None]
  - Skin hypertrophy [None]
  - Skin fissures [None]
